FAERS Safety Report 18539435 (Version 3)
Quarter: 2020Q4

REPORT INFORMATION
  Report Type: Report from Study
  Country: None (occurrence: US)
  Receive Date: 20201124
  Receipt Date: 20201218
  Transmission Date: 20210114
  Serious: Yes (Hospitalization, Other)
  Sender: FDA-Public Use
  Company Number: US-INSMED, INC.-US-INS-20-02144

PATIENT
  Age: 65 Year
  Sex: Male

DRUGS (1)
  1. ARIKAYCE [Suspect]
     Active Substance: AMIKACIN
     Indication: PRODUCT USED FOR UNKNOWN INDICATION
     Route: 055
     Dates: start: 20201109, end: 2020

REACTIONS (9)
  - Fall [Unknown]
  - Rehabilitation therapy [Unknown]
  - Therapy interrupted [Unknown]
  - Muscle twitching [Unknown]
  - Cough [Unknown]
  - Incoherent [Unknown]
  - Eye disorder [Unknown]
  - Loss of consciousness [Unknown]
  - Apnoea [Unknown]

NARRATIVE: CASE EVENT DATE: 202011
